FAERS Safety Report 13257905 (Version 2)
Quarter: 2017Q1

REPORT INFORMATION
  Report Type: Spontaneous
  Country: IT (occurrence: IT)
  Receive Date: 20170221
  Receipt Date: 20170302
  Transmission Date: 20170428
  Serious: Yes (Other)
  Sender: FDA-Public Use
  Company Number: IT-GILEAD-2017-0254291

PATIENT
  Age: 84 Year
  Sex: Male
  Weight: 85 kg

DRUGS (5)
  1. OMNIC OCAS [Concomitant]
     Active Substance: TAMSULOSIN HYDROCHLORIDE
     Indication: BENIGN PROSTATIC HYPERPLASIA
     Dosage: 1 DF, QD
     Route: 048
  2. RIFAXIMIN (NORMIX) [Concomitant]
     Dosage: 4 DF, UNK
     Route: 048
  3. HARVONI [Suspect]
     Active Substance: LEDIPASVIR\SOFOSBUVIR
     Indication: HEPATITIS C
     Dosage: 1 DF, QD
     Route: 048
     Dates: start: 20160923, end: 20170131
  4. NIMOTOP [Concomitant]
     Active Substance: NIMODIPINE
  5. CITICOLINE [Concomitant]
     Active Substance: CITICOLINE
     Dosage: UNK

REACTIONS (4)
  - Vertigo [Unknown]
  - Confusional state [Unknown]
  - Headache [Unknown]
  - Cerebrovascular accident [Unknown]

NARRATIVE: CASE EVENT DATE: 20161228
